FAERS Safety Report 17842995 (Version 1)
Quarter: 2020Q2

REPORT INFORMATION
  Report Type: Report from Study
  Country: BR (occurrence: BR)
  Receive Date: 20200530
  Receipt Date: 20200530
  Transmission Date: 20200714
  Serious: Yes (Death, Other)
  Sender: FDA-Public Use
  Company Number: NVSC2020BR150346

PATIENT
  Age: 84 Year
  Sex: Male

DRUGS (1)
  1. ONBRIZE [Suspect]
     Active Substance: INDACATEROL MALEATE
     Indication: CHRONIC OBSTRUCTIVE PULMONARY DISEASE
     Dosage: 150 MG, TWO YEARS AGO
     Route: 065

REACTIONS (3)
  - Intestinal obstruction [Fatal]
  - Gastrointestinal haemorrhage [Fatal]
  - Prostate cancer [Unknown]

NARRATIVE: CASE EVENT DATE: 20200504
